FAERS Safety Report 13335680 (Version 5)
Quarter: 2017Q3

REPORT INFORMATION
  Report Type: Report from Study
  Country: MX (occurrence: MX)
  Receive Date: 20170315
  Receipt Date: 20170824
  Transmission Date: 20171127
  Serious: Yes (Other)
  Sender: FDA-Public Use
  Company Number: MX-ORION CORPORATION ORION PHARMA-ENTC2017-0049

PATIENT
  Sex: Female

DRUGS (8)
  1. MEMANTINE. [Concomitant]
     Active Substance: MEMANTINE
     Route: 065
  2. RISPERIDONE. [Suspect]
     Active Substance: RISPERIDONE
     Route: 065
  3. FLUOXETINE [Concomitant]
     Active Substance: FLUOXETINE HYDROCHLORIDE
     Route: 065
  4. PRAMIPEXOLE. [Concomitant]
     Active Substance: PRAMIPEXOLE
     Route: 065
  5. STALEVO [Suspect]
     Active Substance: CARBIDOPA\ENTACAPONE\LEVODOPA
     Dosage: STRENGTH: 100/25/200 MG
     Route: 065
  6. LEVODOPA [Concomitant]
     Active Substance: LEVODOPA
     Route: 065
  7. CLONAZEPAM. [Concomitant]
     Active Substance: CLONAZEPAM
     Route: 065
  8. STALEVO [Suspect]
     Active Substance: CARBIDOPA\ENTACAPONE\LEVODOPA
     Indication: PARKINSON^S DISEASE
     Dosage: STRENGTH: 100/25/200 MG
     Route: 065

REACTIONS (19)
  - Confusional state [Unknown]
  - Fall [Unknown]
  - Dementia [Unknown]
  - Muscular weakness [Unknown]
  - Aggression [Unknown]
  - Pain in extremity [Unknown]
  - Pain [Unknown]
  - Insomnia [Recovering/Resolving]
  - Head injury [Unknown]
  - Hallucination, visual [Recovering/Resolving]
  - Wound [Unknown]
  - Obsessive thoughts [Not Recovered/Not Resolved]
  - Weight decreased [Unknown]
  - Irritability [Unknown]
  - Gait disturbance [Unknown]
  - Parkinson^s disease [Unknown]
  - Malaise [Unknown]
  - Delirium [Unknown]
  - Limb injury [Unknown]
